FAERS Safety Report 4362583-X (Version None)
Quarter: 2004Q2

REPORT INFORMATION
  Report Type: 
  Country: None (occurrence: None)
  Receive Date: 20040520
  Receipt Date: 20040319
  Transmission Date: 20050107
  Serious: Yes (Hospitalization)
  Sender: FDA-Public Use
  Company Number: T02-USA-02894-01

PATIENT
  Age: 75 Year
  Sex: Female

DRUGS (15)
  1. MEMANTINE (OPEN LABEL, PHASE B)  (MEMANTINE) [Suspect]
     Indication: DEMENTIA ALZHEIMER'S TYPE
     Dosage: 20 MG QD PO
     Route: 048
     Dates: start: 20020618
  2. MEMANTINE (UNBLINDED, PHASE A) (MEMANTINE) [Suspect]
     Indication: DEMENTIA ALZHEIMER'S TYPE
     Dosage: 20 MG QHS PO
     Route: 048
     Dates: start: 20020530, end: 20020617
  3. MEMANTINE (UNBLINDED, PHASE A) (MEMANTINE) [Suspect]
     Indication: DEMENTIA ALZHEIMER'S TYPE
     Dosage: 15 MG QHS PO
     Route: 048
     Dates: start: 20020516, end: 20020529
  4. MEMANTINE (UBLINDED), PHASE A) (MERMANTINE) [Suspect]
     Indication: DEMENTIA ALZHEIMER'S TYPE
     Dosage: 10 MG QHS PO
     Route: 048
     Dates: start: 20020502, end: 20020515
  5. MEMANTINE (UNBLINDED, PHASE A) (MEMANTINE) [Suspect]
     Indication: DEMENTIA ALZHEIMER'S TYPE
     Dosage: 5 MG QHS PO
     Route: 048
     Dates: start: 20020418, end: 20020501
  6. ZYPREXA [Concomitant]
  7. ZOCOR [Concomitant]
  8. PROTONIX [Concomitant]
  9. CELEBREX [Concomitant]
  10. ANEMAGEN [Concomitant]
  11. LEVOXYL [Concomitant]
  12. PREMARIN [Concomitant]
  13. MEDREXY PROGESTERONE (MEDROCYPROGESTERONE) [Concomitant]
  14. ACETYLSALICYLIC ACID SRT [Concomitant]
  15. LASIX [Concomitant]

REACTIONS (7)
  - ANXIETY [None]
  - CHEST DISCOMFORT [None]
  - CHEST PAIN [None]
  - DYSPNOEA [None]
  - PNEUMONIA [None]
  - PULMONARY EMBOLISM [None]
  - SYNCOPE [None]
